FAERS Safety Report 9845609 (Version 3)
Quarter: 2014Q1

REPORT INFORMATION
  Report Type: Spontaneous
  Country: GB (occurrence: GB)
  Receive Date: 20140127
  Receipt Date: 20140326
  Transmission Date: 20141002
  Serious: Yes (Other)
  Sender: FDA-Public Use
  Company Number: GB-JNJFOC-20140100494

PATIENT
  Age: 57 Year
  Sex: Male
  Weight: 68.9 kg

DRUGS (11)
  1. INVEGA [Suspect]
     Indication: BIPOLAR DISORDER
     Route: 048
     Dates: start: 20131202
  2. INVEGA [Suspect]
     Indication: MANIA
     Route: 048
     Dates: start: 20131202
  3. ASPIRIN [Concomitant]
     Indication: PROPHYLAXIS
     Route: 065
  4. SODIUM VALPROATE [Concomitant]
     Indication: BIPOLAR DISORDER
     Route: 065
  5. RAMIPRIL [Concomitant]
     Indication: RENAL HYPERTENSION
     Route: 065
  6. SIMVASTATIN [Concomitant]
     Indication: PROPHYLAXIS
     Route: 065
  7. ATENOLOL [Concomitant]
     Indication: HYPERTENSION
     Route: 065
  8. HALOPERIDOL [Concomitant]
     Indication: SEDATION
     Route: 065
  9. LORAZEPAM [Concomitant]
     Indication: SEDATION
     Route: 065
  10. EPADERM [Concomitant]
     Indication: PRODUCT USED FOR UNKNOWN INDICATION
     Route: 065
  11. PARACETAMOL [Concomitant]
     Indication: PRODUCT USED FOR UNKNOWN INDICATION
     Route: 065

REACTIONS (4)
  - Proteinuria [Unknown]
  - Renal failure chronic [Unknown]
  - Condition aggravated [Recovering/Resolving]
  - Oedema peripheral [Recovering/Resolving]
